FAERS Safety Report 7892578-0 (Version None)
Quarter: 2011Q4

REPORT INFORMATION
  Report Type: 
  Country: None (occurrence: None)
  Receive Date: 20111102
  Receipt Date: 20110516
  Transmission Date: 20120403
  Serious: Yes (Other)
  Sender: FDA-Public Use
  Company Number: 2011-2455

PATIENT
  Age: 70 Year
  Sex: Male

DRUGS (4)
  1. APOKYN [Suspect]
     Indication: PARKINSON'S DISEASE
     Dosage: 1.2 ML/HR (NOT REPORTED),SUBCUTANEOUS
     Route: 058
     Dates: start: 20080401
  2. MADOPAR DISP (MADOPAR /00349201/) [Concomitant]
  3. STALEVO 100 (STALEVO) [Concomitant]
  4. REQUIP XL [Concomitant]

REACTIONS (3)
  - CONTUSION [None]
  - COOMBS TEST POSITIVE [None]
  - MALAISE [None]
